FAERS Safety Report 16487591 (Version 1)
Quarter: 2019Q2

REPORT INFORMATION
  Report Type: Spontaneous
  Country: US (occurrence: US)
  Receive Date: 20190627
  Receipt Date: 20190627
  Transmission Date: 20190711
  Serious: No
  Sender: FDA-Public Use
  Company Number: US-AMNEAL PHARMACEUTICALS-2018AMN00862

PATIENT
  Sex: Female

DRUGS (1)
  1. ESTRADIOL. [Suspect]
     Active Substance: ESTRADIOL
     Indication: PRODUCT USED FOR UNKNOWN INDICATION
     Dosage: 10 MG, 3X/DAY
     Route: 067
     Dates: start: 201708, end: 201807

REACTIONS (5)
  - Therapeutic product effect decreased [Unknown]
  - Urinary tract infection [Unknown]
  - Vulvovaginal pain [Unknown]
  - Abdominal discomfort [Unknown]
  - Extra dose administered [Unknown]
